FAERS Safety Report 6371556-7 (Version None)
Quarter: 2009Q3

REPORT INFORMATION
  Report Type: 
  Country: None (occurrence: None)
  Receive Date: 20090923
  Receipt Date: 20070925
  Transmission Date: 20100115
  Serious: Yes (Hospitalization)
  Sender: FDA-Public Use
  Company Number: US-ASTRAZENECA-2007UW22621

PATIENT
  Age: 4464 Day
  Sex: Female
  Weight: 102.1 kg

DRUGS (65)
  1. SEROQUEL [Suspect]
     Indication: PERSONALITY DISORDER
     Dosage: 25 MG TO 400 MG
     Route: 048
     Dates: start: 19971211, end: 20040928
  2. SEROQUEL [Suspect]
     Indication: BIPOLAR DISORDER
     Dosage: 25 MG TO 400 MG
     Route: 048
     Dates: start: 19971211, end: 20040928
  3. SEROQUEL [Suspect]
     Indication: SCHIZOAFFECTIVE DISORDER
     Dosage: 25 MG TO 400 MG
     Route: 048
     Dates: start: 19971211, end: 20040928
  4. SEROQUEL [Suspect]
     Indication: AGITATION
     Dosage: 25 MG TO 400 MG
     Route: 048
     Dates: start: 19971211, end: 20040928
  5. SEROQUEL [Suspect]
     Indication: DEPRESSION
     Dosage: 25 MG TO 400 MG
     Route: 048
     Dates: start: 19971211, end: 20040928
  6. SEROQUEL [Suspect]
     Indication: ANXIETY
     Dosage: 25 MG TO 400 MG
     Route: 048
     Dates: start: 19971211, end: 20040928
  7. SEROQUEL [Suspect]
     Dosage: 25 TO 300 MG
     Route: 048
     Dates: start: 20000124, end: 20040924
  8. SEROQUEL [Suspect]
     Dosage: 25 TO 300 MG
     Route: 048
     Dates: start: 20000124, end: 20040924
  9. SEROQUEL [Suspect]
     Dosage: 25 TO 300 MG
     Route: 048
     Dates: start: 20000124, end: 20040924
  10. SEROQUEL [Suspect]
     Dosage: 25 TO 300 MG
     Route: 048
     Dates: start: 20000124, end: 20040924
  11. SEROQUEL [Suspect]
     Dosage: 25 TO 300 MG
     Route: 048
     Dates: start: 20000124, end: 20040924
  12. SEROQUEL [Suspect]
     Dosage: 25 TO 300 MG
     Route: 048
     Dates: start: 20000124, end: 20040924
  13. SEROQUEL [Suspect]
     Dosage: 25 MG - 200 MG
     Route: 048
     Dates: start: 20050525, end: 20060120
  14. SEROQUEL [Suspect]
     Dosage: 25 MG - 200 MG
     Route: 048
     Dates: start: 20050525, end: 20060120
  15. SEROQUEL [Suspect]
     Dosage: 25 MG - 200 MG
     Route: 048
     Dates: start: 20050525, end: 20060120
  16. SEROQUEL [Suspect]
     Dosage: 25 MG - 200 MG
     Route: 048
     Dates: start: 20050525, end: 20060120
  17. SEROQUEL [Suspect]
     Dosage: 25 MG - 200 MG
     Route: 048
     Dates: start: 20050525, end: 20060120
  18. SEROQUEL [Suspect]
     Dosage: 25 MG - 200 MG
     Route: 048
     Dates: start: 20050525, end: 20060120
  19. ABILIFY [Concomitant]
     Dosage: 15-20 MG
     Dates: start: 20000202, end: 20051116
  20. GEODON [Concomitant]
     Dates: start: 20040922, end: 20071023
  21. HALDOL [Concomitant]
     Dosage: 2 MG -5 MG
     Dates: start: 20000929, end: 20050523
  22. RISPERDAL [Concomitant]
     Dates: start: 20040101, end: 20050101
  23. ADDERALL 10 [Concomitant]
     Dosage: 10-20 MG
     Dates: start: 20000511, end: 20021216
  24. CYMBALTA [Concomitant]
     Dosage: 30-60 MG
     Dates: start: 20050627, end: 20050802
  25. LAMICTAL [Concomitant]
     Dosage: 25-200 MG
     Dates: start: 20040928, end: 20051116
  26. WELLBUTRIN [Concomitant]
     Dates: start: 19990111, end: 19991105
  27. ZOLOFT [Concomitant]
     Dates: start: 20040126, end: 20040921
  28. GLUCOPHAGE [Concomitant]
  29. DILANTIN [Concomitant]
  30. HUMULIN 70/30 [Concomitant]
  31. INDERAL [Concomitant]
  32. ZYPREXA ZYDIS [Concomitant]
  33. MOTRIN [Concomitant]
  34. TOPAMAX [Concomitant]
  35. NAPROSYN [Concomitant]
  36. BUSPAR [Concomitant]
  37. MYLANTA [Concomitant]
  38. KAOPECTATE [Concomitant]
  39. TAVIST [Concomitant]
  40. RIOPAN [Concomitant]
  41. DEPO-PROVERA [Concomitant]
  42. ALLEGRA [Concomitant]
  43. BENADRYL [Concomitant]
  44. PROZAC [Concomitant]
  45. FOLIC ACID [Concomitant]
  46. ROBITUSSIN DM [Concomitant]
  47. CHOLEST OFF [Concomitant]
  48. PROCARDIA [Concomitant]
  49. NOVOLOG [Concomitant]
  50. LANTUS [Concomitant]
  51. CARAFATE [Concomitant]
  52. VALIUM [Concomitant]
  53. PROMETH HCL [Concomitant]
  54. PROLIXIN DECANOATE [Concomitant]
  55. IMIPRAMINE HCL [Concomitant]
  56. STELAZINE [Concomitant]
  57. SERZONE [Concomitant]
  58. NORTREL 7/7/7 [Concomitant]
  59. BUSPIRONE HCL [Concomitant]
  60. PREVACID [Concomitant]
  61. CARBINOXAMINE [Concomitant]
  62. RITALIN [Concomitant]
  63. NYSTATIN [Concomitant]
  64. TIGAN [Concomitant]
  65. SUDAFED 12 HOUR [Concomitant]

REACTIONS (2)
  - DIABETES MELLITUS [None]
  - TYPE 2 DIABETES MELLITUS [None]
